FAERS Safety Report 10248801 (Version 1)
Quarter: 2014Q2

REPORT INFORMATION
  Report Type: Spontaneous
  Country: FR (occurrence: None)
  Receive Date: 20140618
  Receipt Date: 20140618
  Transmission Date: 20141212
  Serious: Yes (Hospitalization)
  Sender: FDA-Public Use
  Company Number: B0999947A

PATIENT
  Age: 51 Year
  Sex: Female

DRUGS (10)
  1. PAROXETINE HYDROCHLORIDE [Suspect]
     Indication: PRODUCT USED FOR UNKNOWN INDICATION
     Route: 048
     Dates: start: 201401
  2. VALACICLOVIR HYDROCHLORIDE [Suspect]
     Indication: PRODUCT USED FOR UNKNOWN INDICATION
     Route: 048
     Dates: start: 201308
  3. CYCLOSPORIN [Suspect]
     Indication: PRODUCT USED FOR UNKNOWN INDICATION
     Route: 048
     Dates: start: 20131201
  4. CO-TRIMOXAZOLE AUG13 - UNK [Concomitant]
  5. BROMAZEPAM JAN14 - UNK [Concomitant]
  6. CYTARABINE 14AUG13 - UNK [Concomitant]
  7. METHOTREXATE 14AUG13 - UNK [Concomitant]
  8. DAUNORUBICIN UNK [Concomitant]
  9. VINCRISTINE UNK [Concomitant]
  10. CYCLOPHOSPHAMIDE UNK [Concomitant]

REACTIONS (2)
  - Cerebellar syndrome [None]
  - Extrapyramidal disorder [None]
